FAERS Safety Report 20504181 (Version 1)
Quarter: 2022Q1

REPORT INFORMATION
  Report Type: Report from Study
  Country: CO (occurrence: CO)
  Receive Date: 20220222
  Receipt Date: 20220222
  Transmission Date: 20220424
  Serious: Yes (Hospitalization)
  Sender: FDA-Public Use
  Company Number: CO-AstraZeneca-2022A080121

PATIENT
  Age: 0 Year
  Sex: Male
  Weight: 1.9 kg

DRUGS (1)
  1. SYNAGIS [Suspect]
     Active Substance: PALIVIZUMAB
     Indication: Antiviral prophylaxis
     Route: 030
     Dates: start: 20220111

REACTIONS (3)
  - Dyspnoea [Recovering/Resolving]
  - Ill-defined disorder [Recovering/Resolving]
  - Productive cough [Recovering/Resolving]

NARRATIVE: CASE EVENT DATE: 20220202
